FAERS Safety Report 17985370 (Version 1)
Quarter: 2020Q3

REPORT INFORMATION
  Report Type: Spontaneous
  Country: US (occurrence: US)
  Receive Date: 20200706
  Receipt Date: 20200706
  Transmission Date: 20201103
  Serious: No
  Sender: FDA-Public Use
  Company Number: US-BAUSCH-BL-2020-017392

PATIENT
  Age: 74 Year
  Sex: Female

DRUGS (2)
  1. ATIVAN [Suspect]
     Active Substance: LORAZEPAM
     Dosage: 0.5 MG TABLETS TAKING 2 (0.5MG) TABLETS TWICE A DAY
     Route: 048
     Dates: end: 202003
  2. ATIVAN [Suspect]
     Active Substance: LORAZEPAM
     Indication: PANIC ATTACK
     Route: 048

REACTIONS (4)
  - Withdrawal syndrome [Not Recovered/Not Resolved]
  - Product supply issue [Unknown]
  - Therapy interrupted [Unknown]
  - Panic attack [Not Recovered/Not Resolved]

NARRATIVE: CASE EVENT DATE: 202003
